FAERS Safety Report 9555023 (Version 1)
Quarter: 2013Q3

REPORT INFORMATION
  Report Type: Spontaneous
  Country: US (occurrence: None)
  Receive Date: 20130724
  Receipt Date: 20130724
  Transmission Date: 20140515
  Serious: Yes (Other)
  Sender: FDA-Public Use
  Company Number: PHEH2013US005643

PATIENT
  Age: 43 Year
  Sex: Female

DRUGS (4)
  1. GILENYA [Suspect]
     Indication: MULTIPLE SCLEROSIS
     Route: 048
     Dates: start: 20121212
  2. POTASSIUM [Concomitant]
  3. VITAMIN D (ERGOCALCIFEROL) [Concomitant]
  4. AMETHIA (ETHINYLESTRADIOL, LEVONORGESTREL) [Concomitant]

REACTIONS (1)
  - Insomnia [None]
